FAERS Safety Report 9319486 (Version 1)
Quarter: 2012Q4

REPORT INFORMATION
  Report Type: Spontaneous
  Country: TR (occurrence: None)
  Receive Date: 20121214
  Receipt Date: 20121214
  Transmission Date: 20130627
  Serious: Yes (Hospitalization)
  Sender: FDA-Public Use
  Company Number: KAD201211-000503

PATIENT
  Age: 57 Year
  Sex: Male

DRUGS (3)
  1. RIBAVIRIN (RIBAVIRIN) [Suspect]
     Indication: CONGO-CRIMEAN HAEMORRHAGIC FEVER
     Dosage: 2 g loading dose
  2. RIBAVIRIN (RIBAVIRIN) [Suspect]
     Indication: CONGO-CRIMEAN HAEMORRHAGIC FEVER
     Dosage: 4 g/day maintenance dose
  3. THROMBOCYTE REPLACEMENT [Concomitant]

REACTIONS (6)
  - Sinus bradycardia [None]
  - Off label use [None]
  - Aspartate aminotransferase increased [None]
  - Alanine aminotransferase increased [None]
  - Blood alkaline phosphatase increased [None]
  - Blood lactate dehydrogenase increased [None]
